FAERS Safety Report 20845027 (Version 1)
Quarter: 2022Q2

REPORT INFORMATION
  Report Type: Spontaneous
  Country: US (occurrence: None)
  Receive Date: 20220517
  Receipt Date: 20220517
  Transmission Date: 20220721
  Serious: Yes (Other)
  Sender: FDA-Public Use
  Company Number: None

PATIENT
  Age: 64 Year
  Sex: Male
  Weight: 85.5 kg

DRUGS (6)
  1. INGREZZA [Suspect]
     Active Substance: VALBENAZINE
     Indication: Tardive dyskinesia
     Dosage: FREQUENCY : DAILY;?
     Route: 048
     Dates: start: 20220428, end: 20220511
  2. OLMESARTAN [Concomitant]
     Active Substance: OLMESARTAN
  3. PRAVASTATIN [Concomitant]
     Active Substance: PRAVASTATIN
  4. cardiac pacer [Concomitant]
  5. METHOCARBAMOL [Concomitant]
     Active Substance: METHOCARBAMOL
  6. MAGNESIUM [Concomitant]
     Active Substance: MAGNESIUM

REACTIONS (5)
  - Tardive dyskinesia [None]
  - Insomnia [None]
  - Agitation [None]
  - Restlessness [None]
  - Asthenia [None]

NARRATIVE: CASE EVENT DATE: 20220511
